FAERS Safety Report 6044665-X (Version None)
Quarter: 2009Q1

REPORT INFORMATION
  Report Type: 
  Country: None (occurrence: None)
  Receive Date: 20090120
  Receipt Date: 20090116
  Transmission Date: 20090719
  Serious: Yes (Hospitalization)
  Sender: FDA-Public Use
  Company Number: DE-ABBOTT-09P-062-0498182-00

PATIENT
  Age: 75 Year
  Sex: Male
  Weight: 73 kg

DRUGS (3)
  1. CLARITHROMYCIN [Suspect]
     Indication: BRONCHOPNEUMONIA
     Dosage: 1 GRAM, 1 IN 1 DAYS
     Route: 048
     Dates: start: 20081124, end: 20081202
  2. NEO-GILURYTHMAL [Concomitant]
     Indication: DRUG USE FOR UNKNOWN INDICATION
     Dosage: ^60 ^
     Route: 048
  3. PRAVASTATIN [Concomitant]
     Indication: HYPERLIPIDAEMIA
     Dosage: ^40^
     Route: 048

REACTIONS (1)
  - LIVER DISORDER [None]
